FAERS Safety Report 19919147 (Version 2)
Quarter: 2022Q4

REPORT INFORMATION
  Report Type: Report from Study
  Country: US (occurrence: US)
  Receive Date: 20211005
  Receipt Date: 20221112
  Transmission Date: 20230113
  Serious: Yes (Hospitalization)
  Sender: FDA-Public Use
  Company Number: US-AMGEN-USASP2021151077

PATIENT
  Age: 71 Year
  Sex: Female

DRUGS (3)
  1. REPATHA [Suspect]
     Active Substance: EVOLOCUMAB
     Indication: Blood triglycerides increased
     Dosage: 140 MILLIGRAM, Q2WK
     Route: 065
     Dates: start: 2020
  2. REPATHA [Suspect]
     Active Substance: EVOLOCUMAB
     Indication: Type IIa hyperlipidaemia
     Dosage: 140 MILLIGRAM, QMO
     Route: 065
     Dates: start: 2021
  3. REPATHA [Suspect]
     Active Substance: EVOLOCUMAB
     Dosage: 140 MILLIGRAM, Q4WK
     Route: 065
     Dates: start: 2021

REACTIONS (11)
  - Gait disturbance [Unknown]
  - Dehydration [Unknown]
  - Injection site pain [Unknown]
  - Injection site bruising [Unknown]
  - Renal disorder [Unknown]
  - Fall [Unknown]
  - Device difficult to use [Unknown]
  - Off label use [Unknown]
  - Blood potassium increased [Unknown]
  - Pain [Unknown]
  - Contusion [Unknown]

NARRATIVE: CASE EVENT DATE: 20210101
